FAERS Safety Report 14232454 (Version 1)
Quarter: 2017Q4

REPORT INFORMATION
  Report Type: Spontaneous
  Country: AU (occurrence: AU)
  Receive Date: 20171128
  Receipt Date: 20171128
  Transmission Date: 20180321
  Serious: Yes (Life-Threatening, Hospitalization)
  Sender: FDA-Public Use
  Company Number: AU-PURDUE-GBR-2017-0050916

PATIENT
  Age: 20 Year
  Sex: Male

DRUGS (1)
  1. NON-PMN BUPRENORPHINE [Suspect]
     Active Substance: BUPRENORPHINE
     Indication: DEPENDENCE
     Route: 042

REACTIONS (4)
  - Hepatitis C [Unknown]
  - Acute hepatic failure [Recovering/Resolving]
  - Drug abuser [Unknown]
  - Multiple organ dysfunction syndrome [Unknown]
